FAERS Safety Report 16674085 (Version 1)
Quarter: 2019Q3

REPORT INFORMATION
  Report Type: Spontaneous
  Country: US (occurrence: US)
  Receive Date: 20190806
  Receipt Date: 20190806
  Transmission Date: 20191004
  Serious: No
  Sender: FDA-Public Use
  Company Number: US-LUNDBECK-DKLU3002061

PATIENT
  Age: 4 Month
  Sex: Female

DRUGS (2)
  1. ACTH [Suspect]
     Active Substance: CORTICOTROPIN
     Indication: INFANTILE SPASMS
     Route: 065
  2. VIGABATRIN (TABLET) [Suspect]
     Active Substance: VIGABATRIN
     Indication: INFANTILE SPASMS
     Route: 065

REACTIONS (2)
  - Chorea [Recovering/Resolving]
  - Toxicity to various agents [Unknown]
